FAERS Safety Report 4526323-3 (Version None)
Quarter: 2004Q4

REPORT INFORMATION
  Report Type: 
  Country: None (occurrence: None)
  Receive Date: 20041214
  Receipt Date: 20041214
  Transmission Date: 20050328
  Serious: Yes (Other)
  Sender: FDA-Public Use
  Company Number: None

PATIENT
  Sex: Female
  Weight: 75.7507 kg

DRUGS (2)
  1. PROZAC [Suspect]
     Indication: ANXIETY
     Dosage: 40 MG DAILY
  2. PROZAC [Suspect]
     Indication: DEPRESSION
     Dosage: 40 MG DAILY

REACTIONS (1)
  - DRUG INEFFECTIVE [None]
